FAERS Safety Report 13435539 (Version 9)
Quarter: 2020Q1

REPORT INFORMATION
  Report Type: Report from Study
  Country: US (occurrence: US)
  Receive Date: 20170413
  Receipt Date: 20200206
  Transmission Date: 20200409
  Serious: Yes (Hospitalization, Other)
  Sender: FDA-Public Use
  Company Number: US-SA-2017SA064470

PATIENT
  Age: 51 Year
  Sex: Female

DRUGS (5)
  1. ALEMTUZUMAB [Suspect]
     Active Substance: ALEMTUZUMAB
     Dosage: 12 MG, QD
     Route: 041
     Dates: start: 20170407, end: 20170407
  2. ACICLOVIR [Suspect]
     Active Substance: ACYCLOVIR
     Indication: LUNG DISORDER
  3. ALEMTUZUMAB [Suspect]
     Active Substance: ALEMTUZUMAB
     Indication: MULTIPLE SCLEROSIS
     Dosage: 12 MG, QD
     Route: 041
     Dates: start: 20170403, end: 20170405
  4. XARELTO [Concomitant]
     Active Substance: RIVAROXABAN
     Dosage: UNK UNK,UNK
     Route: 065
  5. ALEMTUZUMAB [Suspect]
     Active Substance: ALEMTUZUMAB
     Dosage: 12 MG, QD
     Route: 041
     Dates: start: 20170410, end: 20170410

REACTIONS (45)
  - Pain in extremity [Recovering/Resolving]
  - Tri-iodothyronine free abnormal [Unknown]
  - Memory impairment [Not Recovered/Not Resolved]
  - Thrombosis [Not Recovered/Not Resolved]
  - Unevaluable event [Not Recovered/Not Resolved]
  - Hyperhidrosis [Unknown]
  - Dizziness [Unknown]
  - Palpitations [Recovering/Resolving]
  - Hyperthyroidism [Not Recovered/Not Resolved]
  - Thyroid hormones increased [Not Recovered/Not Resolved]
  - Sleep disorder [Not Recovered/Not Resolved]
  - Neck injury [Not Recovered/Not Resolved]
  - Asthenia [Not Recovered/Not Resolved]
  - Herpes zoster [Unknown]
  - Unevaluable event [Unknown]
  - Influenza [Unknown]
  - Cough [Unknown]
  - Thyrotoxic crisis [Not Recovered/Not Resolved]
  - Fatigue [Unknown]
  - Autoimmune disorder [Unknown]
  - Dyspnoea [Not Recovered/Not Resolved]
  - Hypothyroidism [Not Recovered/Not Resolved]
  - Ear infection [Recovering/Resolving]
  - Sinusitis [Unknown]
  - Heart rate increased [Recovering/Resolving]
  - Inappropriate schedule of product administration [Unknown]
  - Thyroid hormones decreased [Not Recovered/Not Resolved]
  - Pulmonary thrombosis [Not Recovered/Not Resolved]
  - Weight increased [Unknown]
  - Neck pain [Recovering/Resolving]
  - Headache [Not Recovered/Not Resolved]
  - Fatigue [Unknown]
  - Infectious thyroiditis [Unknown]
  - Dysstasia [Not Recovered/Not Resolved]
  - Back disorder [Not Recovered/Not Resolved]
  - Road traffic accident [Unknown]
  - Ligament sprain [Not Recovered/Not Resolved]
  - Multiple sclerosis [Not Recovered/Not Resolved]
  - Pneumonia [Not Recovered/Not Resolved]
  - Thyroxine abnormal [Unknown]
  - Thyroid function test abnormal [Unknown]
  - Antiphospholipid antibodies positive [Not Recovered/Not Resolved]
  - Osteoarthritis [Not Recovered/Not Resolved]
  - Gait disturbance [Not Recovered/Not Resolved]
  - Nausea [Recovering/Resolving]

NARRATIVE: CASE EVENT DATE: 2017
